FAERS Safety Report 4855585-8 (Version None)
Quarter: 2005Q4

REPORT INFORMATION
  Report Type: 
  Country: None (occurrence: None)
  Receive Date: 20051214
  Receipt Date: 20051201
  Transmission Date: 20060501
  Serious: Yes (Death, Hospitalization)
  Sender: FDA-Public Use
  Company Number: 103717

PATIENT
  Age: 88 Year
  Sex: Male

DRUGS (2)
  1. RITUXAN [Suspect]
     Indication: NON-HODGKIN'S LYMPHOMA
     Dosage: 375 MG/M2, X4, INTRAVENOUS
     Route: 042
     Dates: start: 20020611, end: 20020702
  2. SOLU-MEDROL [Concomitant]

REACTIONS (6)
  - GENERAL PHYSICAL HEALTH DETERIORATION [None]
  - HEPATIC FAILURE [None]
  - HEPATITIS ACUTE [None]
  - PLASMAPHERESIS [None]
  - PNEUMONIA [None]
  - SHOCK [None]
